FAERS Safety Report 13925885 (Version 5)
Quarter: 2017Q4

REPORT INFORMATION
  Report Type: Spontaneous
  Country: JP (occurrence: JP)
  Receive Date: 20170831
  Receipt Date: 20171103
  Transmission Date: 20180320
  Serious: Yes (Death, Hospitalization)
  Sender: FDA-Public Use
  Company Number: JP-JNJFOC-20170828111

PATIENT
  Age: 85 Year
  Sex: Female
  Weight: 41 kg

DRUGS (22)
  1. PREDNISOLONE ACETATE. [Suspect]
     Active Substance: PREDNISOLONE ACETATE
     Indication: COLITIS ULCERATIVE
     Route: 065
     Dates: start: 20170116, end: 20170203
  2. PREDNISOLONE ACETATE. [Suspect]
     Active Substance: PREDNISOLONE ACETATE
     Indication: COLITIS ULCERATIVE
     Route: 048
     Dates: start: 20170227, end: 2017
  3. NIZATIDINE. [Concomitant]
     Active Substance: NIZATIDINE
     Dosage: AFTER BREAKFAST,AFTER DINNER
     Route: 048
  4. FUROSEMIDE. [Concomitant]
     Active Substance: FUROSEMIDE
     Dosage: AFTER BREAKFAST
     Route: 048
  5. PREDNISOLONE ACETATE. [Suspect]
     Active Substance: PREDNISOLONE ACETATE
     Indication: COLITIS ULCERATIVE
     Route: 065
     Dates: start: 20170704, end: 201707
  6. PREDNISOLONE ACETATE. [Suspect]
     Active Substance: PREDNISOLONE ACETATE
     Indication: COLITIS ULCERATIVE
     Route: 065
     Dates: start: 2017, end: 20170327
  7. MIYA-BM [Concomitant]
     Active Substance: CLOSTRIDIUM BUTYRICUM SPORES STRAIN M-55
     Dosage: AFTER LUNCH
     Route: 048
  8. SIMPONI [Suspect]
     Active Substance: GOLIMUMAB
     Indication: COLITIS ULCERATIVE
     Route: 058
     Dates: start: 20170623, end: 20170623
  9. DAIPHEN [Concomitant]
     Active Substance: SULFAMETHOXAZOLE\TRIMETHOPRIM
     Dosage: AFTER BREAKFAST
     Route: 048
  10. PREDNISOLONE ACETATE. [Suspect]
     Active Substance: PREDNISOLONE ACETATE
     Indication: COLITIS ULCERATIVE
     Route: 048
     Dates: start: 20170204, end: 20170226
  11. PREDONEMA [Concomitant]
     Active Substance: PREDNISOLONE SODIUM PHOSPHATE
     Route: 054
  12. NIZATIDINE. [Concomitant]
     Active Substance: NIZATIDINE
     Route: 048
  13. PREDNISOLONE ACETATE. [Suspect]
     Active Substance: PREDNISOLONE ACETATE
     Indication: COLITIS ULCERATIVE
     Route: 042
     Dates: start: 20170713
  14. GANCICLOVIR. [Concomitant]
     Active Substance: GANCICLOVIR
     Route: 041
     Dates: start: 20170722, end: 20170724
  15. PREDNISOLONE ACETATE. [Suspect]
     Active Substance: PREDNISOLONE ACETATE
     Indication: COLITIS ULCERATIVE
     Route: 042
     Dates: start: 201707, end: 20170712
  16. BIOFERMIN [Concomitant]
     Active Substance: BACILLUS SUBTILIS\LACTOBACILLUS ACIDOPHILUS\STREPTOCOCCUS FAECAIS
     Dosage: AFTER BREAKFAST,AFTER LUNCH,AFTER DINNER
     Route: 048
  17. SIMPONI [Suspect]
     Active Substance: GOLIMUMAB
     Indication: COLITIS ULCERATIVE
     Route: 058
     Dates: start: 20170707, end: 20170707
  18. PREDNISOLONE ACETATE. [Suspect]
     Active Substance: PREDNISOLONE ACETATE
     Indication: COLITIS ULCERATIVE
     Route: 065
     Dates: start: 20170114, end: 20170115
  19. METRONIDAZOLE. [Concomitant]
     Active Substance: METRONIDAZOLE
     Route: 065
     Dates: start: 20170713
  20. SPIRONOLACTONE. [Concomitant]
     Active Substance: SPIRONOLACTONE
     Dosage: AFTER LUNCH
     Route: 048
  21. SERTRALINE [Concomitant]
     Active Substance: SERTRALINE HYDROCHLORIDE
     Dosage: AFTER DINNER
     Route: 048
  22. LIVACT [Concomitant]
     Active Substance: AMINO ACIDS
     Dosage: AFTER BREAKFAS(1DF)T, AT BEDTIME(2DF)
     Route: 048

REACTIONS (1)
  - Pneumocystis jirovecii pneumonia [Fatal]

NARRATIVE: CASE EVENT DATE: 20170724
